FAERS Safety Report 17124983 (Version 1)
Quarter: 2019Q4

REPORT INFORMATION
  Report Type: Report from Study
  Country: US (occurrence: US)
  Receive Date: 20191206
  Receipt Date: 20191206
  Transmission Date: 20200122
  Serious: No
  Sender: FDA-Public Use
  Company Number: NVSC2019US061021

PATIENT
  Age: 50 Year
  Sex: Female

DRUGS (3)
  1. ILARIS [Suspect]
     Active Substance: CANAKINUMAB
     Dosage: UNK MG, QMO
     Route: 065
     Dates: start: 20191003
  2. ILARIS [Suspect]
     Active Substance: CANAKINUMAB
     Indication: MUCKLE-WELLS SYNDROME
     Dosage: 150 MG, QMO
     Route: 065
     Dates: start: 20131106
  3. ILARIS [Suspect]
     Active Substance: CANAKINUMAB
     Dosage: UNK MG, QMO
     Route: 065
     Dates: start: 20191010

REACTIONS (1)
  - Inappropriate schedule of product administration [Unknown]
